FAERS Safety Report 9466816 (Version 1)
Quarter: 2013Q3

REPORT INFORMATION
  Report Type: Spontaneous
  Country: FR (occurrence: FR)
  Receive Date: 20130820
  Receipt Date: 20130820
  Transmission Date: 20140515
  Serious: Yes (Life-Threatening, Hospitalization)
  Sender: FDA-Public Use
  Company Number: FR-BRACCO-001200

PATIENT
  Age: 80 Year
  Sex: Female

DRUGS (13)
  1. IOPAMIRON [Suspect]
     Indication: SPINAL MYELOGRAM
     Route: 037
     Dates: start: 20130712, end: 20130712
  2. KERLONE [Concomitant]
  3. COVERSYL [Concomitant]
  4. KARDEGIC [Concomitant]
  5. DAFALGAN [Concomitant]
  6. TIAPRIDAL [Concomitant]
     Dates: start: 20130712
  7. DOGMATIL [Concomitant]
     Dates: start: 20130712
  8. CIFLOX [Concomitant]
     Indication: URINARY TRACT INFECTION
     Dates: start: 20130715
  9. FLUDEX [Concomitant]
  10. SERESTA [Concomitant]
  11. VALIUM [Concomitant]
     Dates: start: 20130712
  12. LYRICA [Concomitant]
  13. LANSOPRAZOLE [Concomitant]

REACTIONS (4)
  - Meningitis [Recovering/Resolving]
  - Meningeal disorder [Recovering/Resolving]
  - Confusional state [Recovered/Resolved]
  - Hyperthermia [Recovered/Resolved]
